FAERS Safety Report 14288604 (Version 3)
Quarter: 2020Q2

REPORT INFORMATION
  Report Type: Spontaneous
  Country: JP (occurrence: JP)
  Receive Date: 20171215
  Receipt Date: 20200616
  Transmission Date: 20200713
  Serious: Yes (Death, Hospitalization, Other)
  Sender: FDA-Public Use
  Company Number: JP-BRISTOL-MYERS SQUIBB COMPANY-BMS-2017-114073

PATIENT
  Age: 46 Year
  Sex: Female

DRUGS (1)
  1. OPDIVO [Suspect]
     Active Substance: NIVOLUMAB
     Indication: GASTRIC CANCER RECURRENT
     Dosage: 2 MG/KG, Q2WK
     Route: 041
     Dates: start: 20171116, end: 20171208

REACTIONS (3)
  - Cardio-respiratory arrest [Unknown]
  - Malignant neoplasm progression [Fatal]
  - Intentional product use issue [Unknown]
